FAERS Safety Report 16464472 (Version 2)
Quarter: 2020Q3

REPORT INFORMATION
  Report Type: Report from Study
  Country: US (occurrence: US)
  Receive Date: 20190621
  Receipt Date: 20191001
  Transmission Date: 20201104
  Serious: Yes (Death, Other)
  Sender: FDA-Public Use
  Company Number: US-PFIZER INC-2019177488

PATIENT
  Age: 64 Year
  Sex: Female
  Weight: 56.6 kg

DRUGS (9)
  1. AVELUMAB [Suspect]
     Active Substance: AVELUMAB
     Indication: NEOPLASM
     Dosage: 800 MG, CYCLIC (DAY 1 AND DAY 15 OF EACH 28 DAY CYCLE)
     Route: 042
     Dates: start: 20190201, end: 20190315
  2. PREDNISONE. [Concomitant]
     Active Substance: PREDNISONE
     Dosage: 60 MG, DAILY, MOST RECENT DOSE ON 25APR2019
     Route: 048
     Dates: start: 20190425, end: 20190513
  3. NYSTATIN. [Concomitant]
     Active Substance: NYSTATIN
     Indication: CANDIDA INFECTION
     Dosage: 5 ML(1000000/ML), 4X/DAY, PO SWISH AND SPIT
     Route: 048
     Dates: start: 20190416
  4. OXYCODONE [Concomitant]
     Active Substance: OXYCODONE
     Indication: BACK PAIN
     Dosage: 5 MG, AS NEEDED, THE MOST RECENT DOSE ON 03MAY2019
     Route: 048
     Dates: start: 20190423
  5. PREDNISONE. [Concomitant]
     Active Substance: PREDNISONE
     Dosage: 50 MG, DAILY
     Route: 048
     Dates: start: 20190514
  6. OLANZAPINE. [Concomitant]
     Active Substance: OLANZAPINE
     Indication: NAUSEA
     Dosage: 10 MG, DAILY
     Route: 048
     Dates: start: 20190101
  7. HYDROCODONE [Concomitant]
     Active Substance: HYDROCODONE
     Indication: BACK PAIN
     Dosage: 7.5 MG, DAILY
     Route: 048
     Dates: start: 20190222, end: 20190423
  8. PREDNISONE. [Concomitant]
     Active Substance: PREDNISONE
     Indication: LIVER FUNCTION TEST
     Dosage: 100 MG, DAILY, MOST RECENT DOSE ON 23APR2019
     Route: 048
     Dates: start: 20190423, end: 20190425
  9. TALAZOPARIB. [Suspect]
     Active Substance: TALAZOPARIB
     Indication: NEOPLASM
     Dosage: 0.75 MG, 1X/DAY
     Route: 048
     Dates: start: 20190201, end: 20190328

REACTIONS (5)
  - Aspartate aminotransferase increased [Recovered/Resolved]
  - Blood bilirubin increased [Recovered/Resolved]
  - Gamma-glutamyltransferase increased [Not Recovered/Not Resolved]
  - Alanine aminotransferase increased [Recovered/Resolved]
  - Thrombocytopenia [Not Recovered/Not Resolved]

NARRATIVE: CASE EVENT DATE: 20190423
